FAERS Safety Report 17427152 (Version 1)
Quarter: 2020Q1

REPORT INFORMATION
  Report Type: Spontaneous
  Country: JP (occurrence: JP)
  Receive Date: 20200217
  Receipt Date: 20200217
  Transmission Date: 20200409
  Serious: Yes (Hospitalization)
  Sender: FDA-Public Use
  Company Number: JP-009507513-2002JPN005857

PATIENT
  Age: 8 Decade
  Sex: Female

DRUGS (2)
  1. HYALEIN [Suspect]
     Active Substance: HYALURONATE SODIUM
     Dosage: UNK
     Route: 047
  2. DORZOLAMIDE HYDROCHLORIDE. [Suspect]
     Active Substance: DORZOLAMIDE HYDROCHLORIDE
     Dosage: UNK
     Route: 047

REACTIONS (1)
  - Spinal fusion surgery [Recovered/Resolved]
